FAERS Safety Report 15248182 (Version 1)
Quarter: 2018Q3

REPORT INFORMATION
  Report Type: Spontaneous
  Country: US (occurrence: US)
  Receive Date: 20180807
  Receipt Date: 20180807
  Transmission Date: 20181010
  Serious: No
  Sender: FDA-Public Use
  Company Number: US-BAYER-2018-147295

PATIENT
  Age: 84 Year
  Sex: Male
  Weight: 86 kg

DRUGS (1)
  1. MIRALAX [Suspect]
     Active Substance: POLYETHYLENE GLYCOL 3350
     Indication: GASTROINTESTINAL DISORDER
     Dosage: ;17 G IN 4?8 OUNCES OF WATER DOSE
     Route: 048
     Dates: start: 201807

REACTIONS (1)
  - Drug ineffective [Unknown]
